FAERS Safety Report 9247414 (Version 2)
Quarter: 2013Q2

REPORT INFORMATION
  Report Type: Spontaneous
  Country: US (occurrence: US)
  Receive Date: 20130423
  Receipt Date: 20130524
  Transmission Date: 20140414
  Serious: Yes (Other)
  Sender: FDA-Public Use
  Company Number: US-BAYER-2013-050071

PATIENT
  Age: 39 Year
  Sex: Female

DRUGS (7)
  1. MIRENA [Suspect]
     Indication: CONTRACEPTION
     Dosage: 20 MCG/24HR, CONT
     Route: 015
     Dates: start: 20130412, end: 20130413
  2. MIRENA [Suspect]
     Indication: CONTRACEPTION
  3. HYDROCHLOROTHIAZIDE [Concomitant]
  4. METOPROLOL SUCCINATE [Concomitant]
  5. VITAMIN D [Concomitant]
  6. ZYRTEC [Concomitant]
  7. PROGESTERONE [Concomitant]

REACTIONS (8)
  - Pelvic inflammatory disease [None]
  - Abdominal distension [None]
  - Hot flush [None]
  - Pyrexia [None]
  - Abdominal pain lower [None]
  - Nausea [None]
  - Pelvic pain [None]
  - Vaginal discharge [None]
